FAERS Safety Report 8119870-9 (Version None)
Quarter: 2012Q1

REPORT INFORMATION
  Report Type: 
  Country: None (occurrence: None)
  Receive Date: 20120207
  Receipt Date: 20120201
  Transmission Date: 20120608
  Serious: Yes (Congenital Anomaly, Other)
  Sender: FDA-Public Use
  Company Number: US-PFIZER INC-2011285523

PATIENT
  Sex: Male
  Weight: 2.9 kg

DRUGS (5)
  1. ZOLOFT [Suspect]
     Dosage: 50 MG, 1X/DAY
     Route: 064
     Dates: start: 20080501
  2. MULTI-VITAMINS [Concomitant]
     Dosage: 1 TAB DAILY
     Route: 064
  3. ZOLOFT [Suspect]
     Indication: ANXIETY
     Dosage: 150 MG, UNK
     Route: 064
     Dates: start: 20070516
  4. ACETAMINOPHEN [Concomitant]
     Dosage: UNK
     Route: 064
     Dates: start: 20080922
  5. PRILOSEC [Concomitant]
     Dosage: UNK
     Route: 064
     Dates: start: 20080922

REACTIONS (7)
  - CARDIAC MURMUR [None]
  - PATENT DUCTUS ARTERIOSUS [None]
  - RIGHT ATRIAL DILATATION [None]
  - MATERNAL EXPOSURE TIMING UNSPECIFIED [None]
  - TRICUSPID VALVE INCOMPETENCE [None]
  - BLOOD GLUCOSE DECREASED [None]
  - DILATATION VENTRICULAR [None]
